FAERS Safety Report 6832406-5 (Version None)
Quarter: 2010Q3

REPORT INFORMATION
  Report Type: 
  Country: None (occurrence: None)
  Receive Date: 20100712
  Receipt Date: 20070308
  Transmission Date: 20110219
  Serious: No
  Sender: FDA-Public Use
  Company Number: US-PFIZER INC-2007020572

PATIENT
  Sex: Male
  Weight: 92.99 kg

DRUGS (6)
  1. CHANTIX [Suspect]
     Indication: SMOKING CESSATION THERAPY
     Dates: start: 20070201
  2. VALIUM [Concomitant]
  3. MULTI-VITAMINS [Concomitant]
  4. CHONDROITIN SULFATE [Concomitant]
  5. CARTILAGE [Concomitant]
  6. SKELAXIN [Concomitant]
     Indication: SURGERY

REACTIONS (1)
  - NIGHTMARE [None]
